FAERS Safety Report 24273029 (Version 1)
Quarter: 2024Q3

REPORT INFORMATION
  Report Type: Spontaneous
  Country: PT (occurrence: PT)
  Receive Date: 20240902
  Receipt Date: 20240902
  Transmission Date: 20241017
  Serious: Yes (Death, Hospitalization)
  Sender: ROCHE
  Company Number: PT-ROCHE-10000067469

PATIENT
  Age: 78 Year
  Sex: Female

DRUGS (2)
  1. RITUXIMAB [Suspect]
     Active Substance: RITUXIMAB
     Indication: Langerhans^ cell histiocytosis
     Route: 065
  2. RITUXIMAB [Suspect]
     Active Substance: RITUXIMAB
     Indication: Vasculitis

REACTIONS (5)
  - Necrotising fasciitis [Fatal]
  - Septic shock [Fatal]
  - Escherichia infection [Fatal]
  - Klebsiella infection [Fatal]
  - Off label use [Unknown]
